FAERS Safety Report 5855522-3 (Version None)
Quarter: 2008Q3

REPORT INFORMATION
  Report Type: 
  Country: None (occurrence: None)
  Receive Date: 20080821
  Receipt Date: 20080812
  Transmission Date: 20090109
  Serious: Yes (Death, Hospitalization)
  Sender: FDA-Public Use
  Company Number: 2008BI011362

PATIENT
  Age: 41 Year
  Sex: Female

DRUGS (2)
  1. AVONEX [Suspect]
     Dosage: 30 UG;QW;IM, 30 UG;QW;IM
     Route: 030
     Dates: end: 20080401
  2. AVONEX [Suspect]
     Dosage: 30 UG;QW;IM, 30 UG;QW;IM
     Route: 030
     Dates: start: 20010101

REACTIONS (2)
  - PAIN [None]
  - PANCREATIC CARCINOMA [None]
